FAERS Safety Report 10019657 (Version 1)
Quarter: 2014Q1

REPORT INFORMATION
  Report Type: Spontaneous
  Country: US (occurrence: US)
  Receive Date: 20140318
  Receipt Date: 20140318
  Transmission Date: 20141002
  Serious: Yes (Life-Threatening)
  Sender: FDA-Public Use
  Company Number: US-BAXTER-2014BAX012243

PATIENT
  Age: 56 Year
  Sex: Female

DRUGS (8)
  1. 0.9% SODIUM CHLORIDE INJECTION [Suspect]
     Indication: HYPOTENSION
     Route: 042
  2. 0.9% SODIUM CHLORIDE INJECTION [Suspect]
     Route: 042
  3. DOPAMINE [Suspect]
     Indication: BLOOD PRESSURE ABNORMAL
     Route: 065
  4. NOREPINEPHRINE [Suspect]
     Indication: BLOOD PRESSURE ABNORMAL
     Route: 065
  5. HYDROCORTISONE [Suspect]
     Indication: ADRENAL INSUFFICIENCY
     Dosage: STRESS-DOSE
     Route: 065
  6. VANCOMYCIN [Concomitant]
     Indication: URINARY TRACT INFECTION
     Route: 065
  7. FLUCONAZOLE [Concomitant]
     Indication: URINARY TRACT INFECTION
     Route: 065
  8. PIPERACILLIN/TAZOBACTAM [Concomitant]
     Indication: PNEUMONIA
     Route: 065

REACTIONS (1)
  - Hypokalaemia [Recovered/Resolved]
